FAERS Safety Report 4632336-3 (Version None)
Quarter: 2005Q2

REPORT INFORMATION
  Report Type: 
  Country: None (occurrence: None)
  Receive Date: 20050411
  Receipt Date: 20050404
  Transmission Date: 20051028
  Serious: Yes (Hospitalization)
  Sender: FDA-Public Use
  Company Number: PHBS2005AU04861

PATIENT
  Age: 16 Year
  Sex: Female
  Weight: 60 kg

DRUGS (9)
  1. CLOZAPINE [Suspect]
     Indication: PSYCHOTIC DISORDER
     Dosage: 225 MG/D
     Route: 065
  2. CABERGOLINE [Concomitant]
     Indication: PROLACTINOMA
     Dosage: 0.5 MG, QW
     Route: 065
  3. CABERGOLINE [Concomitant]
     Dosage: 0.5 MG, BIW
     Route: 065
  4. THYROXINE [Concomitant]
     Indication: THYROID DISORDER
     Dosage: 250 MG/D
     Route: 065
  5. TEMAZEPAM [Concomitant]
     Indication: PSYCHOTIC DISORDER
     Route: 065
  6. LEVONORGESTREL AND ETHINYL ESTRADIOL [Concomitant]
     Indication: MENSTRUATION IRREGULAR
     Route: 065
  7. NORETHISTERONE [Concomitant]
     Indication: MENSTRUATION IRREGULAR
     Route: 065
  8. WARFARIN SODIUM [Concomitant]
     Indication: CARDIAC DISORDER
     Route: 065
  9. LISINOPRIL [Concomitant]
     Indication: CARDIAC DISORDER
     Dosage: 5 MG/D
     Route: 065

REACTIONS (12)
  - AUTOIMMUNE THYROIDITIS [None]
  - BLOOD PROLACTIN INCREASED [None]
  - COELIAC DISEASE [None]
  - GOITRE [None]
  - HYPOTHYROIDISM [None]
  - MENORRHAGIA [None]
  - NAUSEA [None]
  - PITUITARY TUMOUR BENIGN [None]
  - TREMOR [None]
  - VISUAL FIELD DEFECT [None]
  - VOMITING [None]
  - WEIGHT DECREASED [None]
